FAERS Safety Report 6175444-0 (Version None)
Quarter: 2009Q2

REPORT INFORMATION
  Report Type: 
  Country: None (occurrence: None)
  Receive Date: 20090429
  Receipt Date: 20090415
  Transmission Date: 20091009
  Serious: Yes (Life-Threatening)
  Sender: FDA-Public Use
  Company Number: POMP-1000515

PATIENT
  Age: 31 Year
  Sex: Male
  Weight: 69 kg

DRUGS (3)
  1. MYOZYME [Suspect]
     Indication: GLYCOGEN STORAGE DISEASE TYPE II
     Dosage: 20 MG/KG, Q2W, INTRAVENOUS
     Route: 042
     Dates: start: 20081101
  2. MYOZYME [Suspect]
  3. TRETINOIN [Suspect]

REACTIONS (4)
  - ACUTE MYELOID LEUKAEMIA [None]
  - DYSPNOEA [None]
  - INFUSION RELATED REACTION [None]
  - PYREXIA [None]
